FAERS Safety Report 25888339 (Version 1)
Quarter: 2025Q4

REPORT INFORMATION
  Report Type: Spontaneous
  Country: CN (occurrence: CN)
  Receive Date: 20251007
  Receipt Date: 20251007
  Transmission Date: 20260118
  Serious: Yes (Hospitalization)
  Sender: ACCORD
  Company Number: None

PATIENT
  Age: 46 Year
  Sex: Female
  Weight: 48 kg

DRUGS (4)
  1. TRASTUZUMAB [Suspect]
     Active Substance: TRASTUZUMAB
     Indication: Breast cancer
     Dosage: 150 MILLIGRAM, QD, STRENGTH: 150 MILLIGRAM IV DRIP
     Route: 042
     Dates: start: 20250828, end: 20250828
  2. CARBOPLATIN [Suspect]
     Active Substance: CARBOPLATIN
     Indication: Breast cancer
     Dosage: 500 MILLIGRAM, QD,  IV DRIP
     Route: 042
     Dates: start: 20250829, end: 20250829
  3. DOCETAXEL [Suspect]
     Active Substance: DOCETAXEL
     Indication: Breast cancer
     Dosage: 100 MILLIGRAM, QD; IV DRIP
     Route: 042
     Dates: start: 20250829, end: 20250829
  4. TRASTUZUMAB [Suspect]
     Active Substance: TRASTUZUMAB
     Indication: Breast cancer
     Dosage: 120 MILLIGRAM, QD, IV DRIP
     Route: 042
     Dates: start: 20250828, end: 20250828

REACTIONS (1)
  - Myelosuppression [Recovering/Resolving]

NARRATIVE: CASE EVENT DATE: 20250915
